FAERS Safety Report 5025881-2 (Version None)
Quarter: 2006Q2

REPORT INFORMATION
  Report Type: 
  Country: None (occurrence: None)
  Receive Date: 20060614
  Receipt Date: 20060601
  Transmission Date: 20061013
  Serious: Yes (Other)
  Sender: FDA-Public Use
  Company Number: 2006SE03094

PATIENT
  Age: 53 Year
  Sex: Female

DRUGS (1)
  1. PLENDIL [Suspect]
     Route: 048

REACTIONS (1)
  - PERIODONTITIS [None]
